FAERS Safety Report 18427895 (Version 2)
Quarter: 2020Q4

REPORT INFORMATION
  Report Type: Spontaneous
  Country: FR (occurrence: FR)
  Receive Date: 20201026
  Receipt Date: 20201217
  Transmission Date: 20210114
  Serious: Yes (Hospitalization, Other)
  Sender: FDA-Public Use
  Company Number: FR-MYLANLABS-2020M1089098

PATIENT
  Age: 66 Year
  Sex: Male
  Weight: 90 kg

DRUGS (16)
  1. METFORMIN [Concomitant]
     Active Substance: METFORMIN HYDROCHLORIDE
     Dosage: 850 MILLIGRAM, TID
  2. METFORMIN [Concomitant]
     Active Substance: METFORMIN HYDROCHLORIDE
     Dosage: 500 MILLIGRAM, BID
  3. DIAMICRON LM [Concomitant]
     Active Substance: GLICLAZIDE
     Dosage: 60 2X/DAY
  4. XULTOPHY 100/3.6 [Concomitant]
     Active Substance: INSULIN DEGLUDEC\LIRAGLUTIDE
     Dosage: 30 UNITS IN THE EVENING
  5. TRESIBA [Concomitant]
     Active Substance: INSULIN DEGLUDEC
     Dosage: 1 DOSAGE FORM, QD
  6. METFORMIN [Concomitant]
     Active Substance: METFORMIN HYDROCHLORIDE
     Dosage: STOPPED AT MIDDAY AND SWITCH TO BID
  7. KARDEGIC [Concomitant]
     Active Substance: ASPIRIN DL-LYSINE
     Dosage: KARDEGIC 75 1 DOSAGE FORM, QD
  8. ATENOLOL. [Concomitant]
     Active Substance: ATENOLOL
     Dosage: ATENOLOL 50 1DF IN MORNING
  9. DUOPLAVIN [Concomitant]
     Active Substance: ASPIRIN\CLOPIDOGREL
     Dosage: DUOPLAVIN 75/75 IN MORNING
  10. ESOMEPRAZOLE. [Concomitant]
     Active Substance: ESOMEPRAZOLE MAGNESIUM
     Dosage: 1DF IN EVENING
  11. METFORMIN [Concomitant]
     Active Substance: METFORMIN HYDROCHLORIDE
     Dosage: 1000 MILLIGRAM, BID
  12. FENOFIBRATE MYLAN PHARMA [Suspect]
     Active Substance: FENOFIBRATE
     Indication: HYPERCHOLESTEROLAEMIA
     Dosage: 67 MILLIGRAM, QD
     Route: 048
  13. ROSUVASTATIN MYLAN 10 MG FILMTABLETTA [Interacting]
     Active Substance: ROSUVASTATIN
     Indication: HYPERCHOLESTEROLAEMIA
     Dosage: 10 MILLIGRAM, QD
     Route: 048
  14. CANDESARTAN. [Concomitant]
     Active Substance: CANDESARTAN
     Dosage: CANDESARTAN 1DF IN MORNING
  15. CLOPIDOGREL [Concomitant]
     Active Substance: CLOPIDOGREL BISULFATE
     Dosage: 75 1X/DAY
  16. LANTUS [Concomitant]
     Active Substance: INSULIN GLARGINE
     Indication: TYPE 2 DIABETES MELLITUS
     Dosage: 1DF IN EVENING FOR 2WEEKS AND BID FOR TWO WEEKS

REACTIONS (7)
  - Facial paralysis [Unknown]
  - Paralysis [Unknown]
  - Drug interaction [Unknown]
  - Transient ischaemic attack [Unknown]
  - Dysarthria [Recovered/Resolved]
  - Aphasia [Unknown]
  - Epilepsy [Recovered/Resolved]

NARRATIVE: CASE EVENT DATE: 201609
